FAERS Safety Report 9119620 (Version 2)
Quarter: 2013Q1

REPORT INFORMATION
  Report Type: Spontaneous
  Country: US (occurrence: None)
  Receive Date: 20130130
  Receipt Date: 20130308
  Transmission Date: 20140127
  Serious: Yes (Hospitalization)
  Sender: FDA-Public Use
  Company Number: ACO_33881_2013

PATIENT
  Age: 60 Year
  Sex: Male

DRUGS (4)
  1. AMPYRA (DALFAMPRIDINE) TABLET, 10 MG [Suspect]
     Route: 048
     Dates: start: 20100812
  2. LORAZEPAM (LORAZEPAM) [Suspect]
     Dosage: PRN
     Route: 048
  3. BACLOFEN [Suspect]
     Route: 048
  4. AMITRIPTYLINE (AMITRIPTYLINE) [Suspect]
     Dosage: 2 QHS
     Route: 048

REACTIONS (4)
  - Fall [None]
  - Dysstasia [None]
  - Urinary tract disorder [None]
  - Prostatic disorder [None]
